FAERS Safety Report 8010171-6 (Version None)
Quarter: 2011Q4

REPORT INFORMATION
  Report Type: 
  Country: None (occurrence: None)
  Receive Date: 20111228
  Receipt Date: 20111215
  Transmission Date: 20120403
  Serious: Yes (Hospitalization)
  Sender: FDA-Public Use
  Company Number: JP-PFIZER INC-2011276364

PATIENT
  Age: 74 Year
  Sex: Female
  Weight: 52.5 kg

DRUGS (11)
  1. SULFAMETHOXAZOLE AND TRIMETHOPRIM [Concomitant]
     Dosage: 1 DF, 1X/DAY
     Route: 048
     Dates: start: 20100118, end: 20100208
  2. PROMACTA [Concomitant]
     Dosage: 75 MG, 2X/DAY
     Route: 048
     Dates: start: 20100118, end: 20100208
  3. ALLOPURINOL [Concomitant]
     Dosage: 100 MG, 3X/DAY
     Route: 048
     Dates: start: 20100118, end: 20100208
  4. LEVOFLOXACIN [Concomitant]
     Dosage: 250 MG, 1X/DAY
     Route: 048
     Dates: start: 20100118, end: 20100208
  5. DIFLUCAN [Suspect]
     Indication: ANTIFUNGAL TREATMENT
     Dosage: 200 MG, 1X/DAY
     Route: 048
     Dates: start: 20100118, end: 20100208
  6. PREDNISOLONE [Concomitant]
     Indication: B-CELL LYMPHOMA
     Dosage: 50 MG, 1X/DAY
     Route: 048
     Dates: start: 20100118, end: 20100208
  7. ONCOVIN [Interacting]
     Indication: ACUTE LYMPHOCYTIC LEUKAEMIA
  8. DOXORUBICIN HYDROCHLORIDE [Concomitant]
     Indication: B-CELL LYMPHOMA
     Dosage: 24 MG, 1X/DAY
     Route: 041
     Dates: start: 20100201, end: 20100201
  9. DOXORUBICIN HYDROCHLORIDE [Concomitant]
     Indication: ACUTE LYMPHOCYTIC LEUKAEMIA
  10. PREDNISOLONE [Concomitant]
     Indication: ACUTE LYMPHOCYTIC LEUKAEMIA
  11. ONCOVIN [Interacting]
     Indication: B-CELL LYMPHOMA
     Dosage: 1.7 MG, 1X/DAY
     Route: 041
     Dates: start: 20100125, end: 20100201

REACTIONS (2)
  - ILEUS PARALYTIC [None]
  - DRUG INTERACTION [None]
